FAERS Safety Report 21584879 (Version 1)
Quarter: 2022Q4

REPORT INFORMATION
  Report Type: Spontaneous
  Country: IT (occurrence: IT)
  Receive Date: 20221111
  Receipt Date: 20221111
  Transmission Date: 20230113
  Serious: Yes (Death, Hospitalization)
  Sender: FDA-Public Use
  Company Number: IT-PERRIGO-22IT014663

PATIENT
  Age: 78 Year
  Sex: Male

DRUGS (3)
  1. ACETAMINOPHEN [Suspect]
     Active Substance: ACETAMINOPHEN
     Indication: Bone pain
     Route: 048
  2. OXYCODONE [Concomitant]
     Active Substance: OXYCODONE
     Indication: Bone pain
     Dosage: UNK
     Route: 048
  3. NALOXONE [Concomitant]
     Active Substance: NALOXONE
     Indication: Bone pain
     Dosage: UNK
     Route: 048

REACTIONS (5)
  - Foreign body aspiration [Fatal]
  - Respiratory failure [Fatal]
  - Pneumonia [Fatal]
  - Atelectasis [Not Recovered/Not Resolved]
  - Pleural effusion [Not Recovered/Not Resolved]
